FAERS Safety Report 6983472-8 (Version None)
Quarter: 2010Q3

REPORT INFORMATION
  Report Type: 
  Country: None (occurrence: None)
  Receive Date: 20100914
  Receipt Date: 20100914
  Transmission Date: 20110219
  Serious: Yes (Other)
  Sender: FDA-Public Use
  Company Number: None

PATIENT
  Age: 91 Year
  Sex: Female

DRUGS (2)
  1. SPIRIVA [Suspect]
     Indication: BRONCHOSPASM
  2. SPIRIVA [Suspect]
     Indication: RESPIRATORY DISORDER

REACTIONS (5)
  - CAPSULE ISSUE [None]
  - INCORRECT DOSE ADMINISTERED [None]
  - LUNG DISORDER [None]
  - MEDICAL DEVICE COMPLICATION [None]
  - PRODUCT QUALITY ISSUE [None]
